FAERS Safety Report 9196323 (Version 2)
Quarter: 2013Q2

REPORT INFORMATION
  Report Type: Spontaneous
  Country: US (occurrence: US)
  Receive Date: 20130328
  Receipt Date: 20130426
  Transmission Date: 20140414
  Serious: Yes (Other)
  Sender: FDA-Public Use
  Company Number: US-ASTELLAS-2013US002489

PATIENT
  Age: 60 Year
  Sex: Female

DRUGS (5)
  1. PROGRAF [Suspect]
     Indication: BONE MARROW TRANSPLANT
     Dosage: 0.5 MG, QOD
     Route: 048
     Dates: start: 20080124
  2. PROGRAF [Suspect]
     Indication: COMPLICATIONS OF BONE MARROW TRANSPLANT
     Dosage: 1 MG, QOD
     Route: 048
  3. PROGRAF [Suspect]
     Indication: PROPHYLAXIS AGAINST GRAFT VERSUS HOST DISEASE
  4. FOSCARNET [Suspect]
     Indication: CYTOMEGALOVIRUS TEST POSITIVE
     Dosage: UNK
     Route: 065
     Dates: start: 20080205, end: 20080214
  5. NARCOTICS [Suspect]
     Indication: PAIN IN EXTREMITY
     Dosage: UNK
     Route: 065

REACTIONS (20)
  - Off label use [Unknown]
  - Subdural haematoma [Unknown]
  - Convulsion [Unknown]
  - Dry eye [Unknown]
  - Orthopnoea [Unknown]
  - Urinary tract infection viral [Unknown]
  - Cytomegalovirus test positive [Recovered/Resolved]
  - Abdominal pain [Unknown]
  - Vomiting [Unknown]
  - Nausea [Unknown]
  - Constipation [Unknown]
  - Vision blurred [Unknown]
  - Gastroenteritis viral [Unknown]
  - Dyspnoea [Unknown]
  - Fatigue [Unknown]
  - Hyperparathyroidism primary [Unknown]
  - Chronic graft versus host disease [Unknown]
  - Renal failure acute [Unknown]
  - Hypercalcaemia [Unknown]
  - Diverticulitis [Unknown]
